FAERS Safety Report 17589773 (Version 2)
Quarter: 2021Q2

REPORT INFORMATION
  Report Type: Spontaneous
  Country: US (occurrence: US)
  Receive Date: 20200327
  Receipt Date: 20210413
  Transmission Date: 20210716
  Serious: No
  Sender: FDA-Public Use
  Company Number: US-ALLERGAN-1948793US

PATIENT
  Sex: Female

DRUGS (1)
  1. LATISSE [Suspect]
     Active Substance: BIMATOPROST
     Indication: GROWTH OF EYELASHES
     Dosage: UNK, QD, AT NIGHT OR MID?DAY
     Route: 061
     Dates: start: 201911

REACTIONS (4)
  - Inappropriate schedule of product administration [Unknown]
  - Eye irritation [Unknown]
  - Pupils unequal [Unknown]
  - Ocular hyperaemia [Unknown]
